FAERS Safety Report 5639916-7 (Version None)
Quarter: 2008Q1

REPORT INFORMATION
  Report Type: 
  Country: None (occurrence: None)
  Receive Date: 20080227
  Receipt Date: 20080227
  Transmission Date: 20080703
  Serious: Yes (Other)
  Sender: FDA-Public Use
  Company Number: None

PATIENT
  Sex: Female

DRUGS (1)
  1. HEPARIN [Suspect]
     Indication: THROMBOSIS PROPHYLAXIS
     Dosage: 2000 UNITS ONCE IVP
     Route: 042
     Dates: start: 20080226

REACTIONS (2)
  - DYSPNOEA [None]
  - FEELING ABNORMAL [None]
